FAERS Safety Report 5481654-8 (Version None)
Quarter: 2007Q4

REPORT INFORMATION
  Report Type: 
  Country: None (occurrence: None)
  Receive Date: 20071010
  Receipt Date: 20070928
  Transmission Date: 20080405
  Serious: Yes (Hospitalization)
  Sender: FDA-Public Use
  Company Number: US-ELI_LILLY_AND_COMPANY-US200710000268

PATIENT
  Sex: Male
  Weight: 114.29 kg

DRUGS (3)
  1. BYETTA [Suspect]
     Indication: TYPE 2 DIABETES MELLITUS
     Dosage: 5 UG, 2/D
     Route: 058
     Dates: start: 20070401
  2. ANTIHYPERTENSIVES [Concomitant]
     Indication: BLOOD PRESSURE
     Dosage: UNK, UNKNOWN
  3. THYROID TAB [Concomitant]
     Indication: THYROID THERAPY
     Dosage: UNK, UNKNOWN

REACTIONS (7)
  - ABDOMINAL PAIN [None]
  - BACK PAIN [None]
  - CALCULUS URETHRAL [None]
  - FLATULENCE [None]
  - PRESYNCOPE [None]
  - VOMITING [None]
  - WEIGHT DECREASED [None]
